FAERS Safety Report 23176195 (Version 1)
Quarter: 2023Q4

REPORT INFORMATION
  Report Type: Spontaneous
  Country: US (occurrence: US)
  Receive Date: 20231113
  Receipt Date: 20231113
  Transmission Date: 20240109
  Serious: Yes (Other)
  Sender: FDA-Public Use
  Company Number: US-GSKCCFUS-Case-01851697_AE-103416

PATIENT

DRUGS (3)
  1. NUCALA [Suspect]
     Active Substance: MEPOLIZUMAB
     Indication: Asthma
     Dosage: 1 DF
     Dates: start: 202307
  2. NUCALA [Suspect]
     Active Substance: MEPOLIZUMAB
     Indication: Chronic obstructive pulmonary disease
  3. INFLUENZA VIRUS VACCINE QUADRIVALENT TYPE A+B [Suspect]
     Active Substance: INFLUENZA VIRUS VACCINE QUADRIVALENT TYPE A+B
     Indication: Product used for unknown indication
     Dosage: UNK
     Dates: start: 20231102

REACTIONS (6)
  - Guillain-Barre syndrome [Not Recovered/Not Resolved]
  - Facial discomfort [Recovered/Resolved]
  - Headache [Recovered/Resolved]
  - Facial pain [Not Recovered/Not Resolved]
  - Feeling hot [Recovered/Resolved]
  - Product administered at inappropriate site [Unknown]

NARRATIVE: CASE EVENT DATE: 20231102
